FAERS Safety Report 11432279 (Version 1)
Quarter: 2015Q3

REPORT INFORMATION
  Report Type: Spontaneous
  Country: DE (occurrence: DE)
  Receive Date: 20150828
  Receipt Date: 20150828
  Transmission Date: 20151125
  Serious: Yes (Other)
  Sender: FDA-Public Use
  Company Number: DE-BAYER-2015-365066

PATIENT
  Age: 48 Year
  Sex: Female

DRUGS (1)
  1. GADOVIST [Suspect]
     Active Substance: GADOBUTROL
     Indication: NUCLEAR MAGNETIC RESONANCE IMAGING ABDOMINAL
     Dosage: 7 ML, ONCE

REACTIONS (10)
  - Anxiety [None]
  - Arthropathy [None]
  - Arthralgia [None]
  - Chest pain [None]
  - Skin disorder [None]
  - Heart rate increased [None]
  - Contrast media reaction [None]
  - Proteinuria [None]
  - Skin burning sensation [None]
  - Drug clearance increased [None]
